FAERS Safety Report 7363166-X (Version None)
Quarter: 2011Q1

REPORT INFORMATION
  Report Type: 
  Country: None (occurrence: None)
  Receive Date: 20110321
  Receipt Date: 20110314
  Transmission Date: 20110831
  Serious: Yes (Life-Threatening, Hospitalization)
  Sender: FDA-Public Use
  Company Number: GB-SOLVAY-00211002148

PATIENT
  Age: 62 Year
  Sex: Female
  Weight: 53.52 kg

DRUGS (3)
  1. CHANTIX [Interacting]
     Indication: PRODUCT USED FOR UNKNOWN INDICATION
     Dosage: DAILY DOSE:  UNKNOWN
     Route: 048
     Dates: start: 20101021, end: 20101224
  2. RAMIPRIL [Concomitant]
     Indication: HYPERTENSION
     Dosage: DAILY DOSE:  UNKNOWN
     Route: 065
     Dates: start: 20101101, end: 20101201
  3. PERINDOPRIL [Suspect]
     Indication: HYPERTENSION
     Dosage: DAILY DOSE: 4 MILLIGRAM(S)
     Route: 048
     Dates: start: 20101201

REACTIONS (8)
  - DEPRESSED LEVEL OF CONSCIOUSNESS [None]
  - INSOMNIA [None]
  - CONFUSIONAL STATE [None]
  - DRUG INTERACTION [None]
  - SWOLLEN TONGUE [None]
  - LOSS OF CONSCIOUSNESS [None]
  - AGITATION [None]
  - DYSARTHRIA [None]
